FAERS Safety Report 12321682 (Version 1)
Quarter: 2016Q2

REPORT INFORMATION
  Report Type: Spontaneous
  Country: US (occurrence: None)
  Receive Date: 20160429
  Receipt Date: 20160429
  Transmission Date: 20160815
  Serious: No
  Sender: FDA-Public Use
  Company Number: None

PATIENT
  Age: 12 Year
  Sex: Male
  Weight: 64.59 kg

DRUGS (1)
  1. GUANFACINE 3MG [Suspect]
     Active Substance: GUANFACINE
     Indication: ATTENTION DEFICIT/HYPERACTIVITY DISORDER
     Dosage: 3M QD PO
     Route: 048
     Dates: start: 20151020

REACTIONS (5)
  - Drug effect incomplete [None]
  - Hostility [None]
  - Product substitution issue [None]
  - Anger [None]
  - Aggression [None]
